FAERS Safety Report 8030300-8 (Version None)
Quarter: 2012Q1

REPORT INFORMATION
  Report Type: 
  Country: None (occurrence: None)
  Receive Date: 20120109
  Receipt Date: 20120104
  Transmission Date: 20120608
  Serious: Yes (Death)
  Sender: FDA-Public Use
  Company Number: PHHY2011MX61346

PATIENT
  Sex: Female

DRUGS (2)
  1. BI-EUGLUCON [Concomitant]
  2. EXFORGE [Suspect]
     Indication: HYPERTENSION
     Dosage: 160 MG VALSARTANA AND 10 MG HYDROCHLOROTHIAZIDE, DAILY
     Dates: start: 20100201

REACTIONS (1)
  - RESPIRATORY ARREST [None]
